FAERS Safety Report 20848848 (Version 1)
Quarter: 2022Q2

REPORT INFORMATION
  Report Type: Spontaneous
  Country: DE (occurrence: DE)
  Receive Date: 20220519
  Receipt Date: 20220519
  Transmission Date: 20220720
  Serious: Yes (Other)
  Sender: FDA-Public Use
  Company Number: DE-ROCHE-2528806

PATIENT
  Sex: Female
  Weight: 49.4 kg

DRUGS (13)
  1. CISPLATIN [Suspect]
     Active Substance: CISPLATIN
     Indication: Diffuse large B-cell lymphoma
     Dosage: UNK UNK, CYCLE ((FOUR CYCLES, GEMCITABINE 750 MG/M2/CARBOPLATIN AUC 4/DEXAMETHASONE 40 MG))
     Route: 065
     Dates: start: 201702, end: 201704
  2. GEMCITABINE [Suspect]
     Active Substance: GEMCITABINE
     Indication: Diffuse large B-cell lymphoma
     Dosage: UNK UNK, CYCLE ((FOUR CYCLES, GEMCITABINE 750 MG/M2/CARBOPLATIN AUC 4/DEXAMETHASONE 40 MG))
     Route: 065
     Dates: start: 201702, end: 201704
  3. BENDAMUSTINE HYDROCHLORIDE [Suspect]
     Active Substance: BENDAMUSTINE HYDROCHLORIDE
     Indication: Diffuse large B-cell lymphoma
     Dosage: UNK UNK, CYCLE (SIX CYCLES)
     Route: 065
     Dates: start: 201902, end: 201907
  4. RITUXIMAB [Suspect]
     Active Substance: RITUXIMAB
     Indication: Diffuse large B-cell lymphoma
     Dosage: UNK UNK, CYCLE (SIX CYCLES )
     Route: 065
     Dates: start: 20141029, end: 201502
  5. RITUXIMAB [Suspect]
     Active Substance: RITUXIMAB
     Dosage: 375 MILLIGRAM/SQ. METER, CYCLE (FOUR CYCLES)
     Route: 065
     Dates: start: 201702, end: 201704
  6. RITUXIMAB [Suspect]
     Active Substance: RITUXIMAB
     Dosage: UNK UNK, CYCLE ((SIX CYCLES))
     Route: 065
     Dates: start: 201902, end: 201907
  7. CYCLOPHOSPHAMIDE\DOXORUBICIN\PREDNISONE\VINCRISTINE [Suspect]
     Active Substance: CYCLOPHOSPHAMIDE\DOXORUBICIN\PREDNISONE\VINCRISTINE
     Indication: Diffuse large B-cell lymphoma
     Dosage: UNK UNK, CYCLE (SIX CYCLES))
     Route: 065
     Dates: start: 20141029, end: 201502
  8. DEXAMETHASONE [Suspect]
     Active Substance: DEXAMETHASONE
     Indication: Diffuse large B-cell lymphoma
     Dosage: UNK UNK, CYCLE (FOUR CYCLES, GEMCITABINE 750 MG/M2/CARBOPLATIN AUC 4/DEXAMETHASONE 40 MG)
     Route: 065
     Dates: start: 201702, end: 201704
  9. ETOPOSIDE [Concomitant]
     Active Substance: ETOPOSIDE
     Indication: Diffuse large B-cell lymphoma
     Dosage: UNK
  10. PIXANTRONE [Concomitant]
     Active Substance: PIXANTRONE
     Indication: Diffuse large B-cell lymphoma
     Dosage: UNK UNK, CYCLE (ONE CYCLE)
     Route: 065
     Dates: start: 201908, end: 201909
  11. PREDNISONE [Concomitant]
     Active Substance: PREDNISONE
     Indication: Diffuse large B-cell lymphoma
     Dosage: UNK
  12. IFOSFAMIDE [Concomitant]
     Active Substance: IFOSFAMIDE
     Indication: Diffuse large B-cell lymphoma
     Dosage: UNK UNK, CYCLE (ONE CYCLE)
     Route: 065
     Dates: start: 20200104
  13. METHOTREXATE [Concomitant]
     Active Substance: METHOTREXATE
     Indication: Diffuse large B-cell lymphoma
     Dosage: UNK

REACTIONS (2)
  - Disease progression [Unknown]
  - Drug ineffective [Unknown]
